FAERS Safety Report 5831008-7 (Version None)
Quarter: 2008Q3

REPORT INFORMATION
  Report Type: 
  Country: None (occurrence: None)
  Receive Date: 20080801
  Receipt Date: 20080310
  Transmission Date: 20090109
  Serious: No
  Sender: FDA-Public Use
  Company Number: US-BRISTOL-MYERS SQUIBB COMPANY-14109045

PATIENT
  Age: 59 Year
  Sex: Male
  Weight: 109 kg

DRUGS (1)
  1. COUMADIN [Suspect]
     Indication: TRANSIENT ISCHAEMIC ATTACK
     Dates: start: 19950101

REACTIONS (1)
  - URTICARIA [None]
